FAERS Safety Report 22386468 (Version 1)
Quarter: 2023Q2

REPORT INFORMATION
  Report Type: Report from Study
  Country: GB (occurrence: GB)
  Receive Date: 20230531
  Receipt Date: 20230531
  Transmission Date: 20230722
  Serious: Yes (Other)
  Sender: FDA-Public Use
  Company Number: GB-002147023-NVSC2022GB288440

PATIENT
  Sex: Female

DRUGS (2)
  1. HYRIMOZ [Suspect]
     Active Substance: ADALIMUMAB-ADAZ
     Indication: Crohn^s disease
     Dosage: 40 MG, Q2W (EOW)
     Route: 058
     Dates: start: 20220927
  2. HYRIMOZ [Suspect]
     Active Substance: ADALIMUMAB-ADAZ
     Dosage: 40 MG, QW (EW)
     Route: 058

REACTIONS (6)
  - Nephrolithiasis [Unknown]
  - Crohn^s disease [Unknown]
  - Malaise [Unknown]
  - Pain [Unknown]
  - Weight increased [Unknown]
  - Drug ineffective [Unknown]
